FAERS Safety Report 11399007 (Version 1)
Quarter: 2015Q3

REPORT INFORMATION
  Report Type: Spontaneous
  Country: US (occurrence: None)
  Receive Date: 20150819
  Receipt Date: 20150819
  Transmission Date: 20151125
  Serious: Yes (Other)
  Sender: FDA-Public Use
  Company Number: None

PATIENT
  Age: 90 Year
  Sex: Female
  Weight: 74.84 kg

DRUGS (10)
  1. FISH OIL [Concomitant]
     Active Substance: FISH OIL
  2. B VITAMIN [Concomitant]
  3. D VITAMIN [Concomitant]
  4. LOW DOSAGE ASPIRIN [Concomitant]
  5. OMEGA [Concomitant]
     Active Substance: CONVALLARIA MAJALIS\CRATAEGUS LAEVIGATA LEAF\PROXYPHYLLINE
  6. LUMIGAN [Concomitant]
     Active Substance: BIMATOPROST
  7. METFORMIN [Concomitant]
     Active Substance: METFORMIN HYDROCHLORIDE
  8. DAILY ASSORTED VITAMINS [Concomitant]
  9. CRANBERRY. [Concomitant]
     Active Substance: CRANBERRY
  10. DORZOLAMIDE HCL /TIMOLOL MALEATE [Suspect]
     Active Substance: DORZOLAMIDE HYDROCHLORIDE\TIMOLOL MALEATE
     Indication: PRODUCT USED FOR UNKNOWN INDICATION
     Dosage: ONCE IN EACH EYE - AM - 1 DROP - EACH EYE
     Dates: start: 20150526, end: 20150526

REACTIONS (7)
  - Product substitution issue [None]
  - Product quality issue [None]
  - Vision blurred [None]
  - Instillation site foreign body sensation [None]
  - Hypersensitivity [None]
  - Instillation site pruritus [None]
  - Skin discolouration [None]

NARRATIVE: CASE EVENT DATE: 20150526
